FAERS Safety Report 17230599 (Version 16)
Quarter: 2022Q3

REPORT INFORMATION
  Report Type: Report from Study
  Country: TR (occurrence: TR)
  Receive Date: 20200103
  Receipt Date: 20220629
  Transmission Date: 20221027
  Serious: Yes (Other)
  Sender: FDA-Public Use
  Company Number: NVSC2019TR078424

PATIENT
  Age: 69 Year
  Sex: Male
  Weight: 81.1 kg

DRUGS (16)
  1. CANAKINUMAB [Suspect]
     Active Substance: CANAKINUMAB
     Indication: Non-small cell lung cancer
     Dosage: 200 MG, Q3W
     Route: 058
     Dates: start: 20191118
  2. PEMBROLIZUMAB [Suspect]
     Active Substance: PEMBROLIZUMAB
     Indication: Non-small cell lung cancer
     Dosage: 200 MG, Q3W
     Route: 042
     Dates: start: 20191118
  3. ANORO ELLIPTA [Concomitant]
     Active Substance: UMECLIDINIUM BROMIDE\VILANTEROL TRIFENATATE
     Indication: Chronic obstructive pulmonary disease
     Dosage: UNK
     Route: 065
     Dates: start: 20190410
  4. QUETIAPINE FUMARATE [Concomitant]
     Active Substance: QUETIAPINE FUMARATE
     Indication: Dementia
     Dosage: UNK
     Route: 065
     Dates: start: 2013
  5. MEXIA [Concomitant]
     Indication: Dementia
     Dosage: UNK
     Route: 065
     Dates: start: 2013
  6. BRILINTA [Concomitant]
     Active Substance: TICAGRELOR
     Indication: Cardiac operation
     Dosage: UNK
     Route: 065
     Dates: start: 20190408, end: 20200212
  7. BRILINTA [Concomitant]
     Active Substance: TICAGRELOR
     Indication: Cardiac failure
  8. LANSOPRAZOLE [Concomitant]
     Active Substance: LANSOPRAZOLE
     Indication: Prophylaxis
     Dosage: UNK
     Route: 065
     Dates: start: 2007, end: 20200210
  9. ATACAND [Concomitant]
     Active Substance: CANDESARTAN CILEXETIL
     Indication: Hypertension
     Dosage: UNK
     Route: 065
     Dates: start: 2007, end: 20200212
  10. LUSTRAL [Concomitant]
     Active Substance: SERTRALINE HYDROCHLORIDE
     Indication: Depression
     Dosage: UNK
     Route: 065
     Dates: start: 20180918, end: 20200212
  11. DILTIZEM [Concomitant]
     Indication: Cardiac operation
     Dosage: UNK
     Route: 065
     Dates: start: 2007, end: 20200212
  12. VASTAREL [Concomitant]
     Active Substance: TRIMETAZIDINE DIHYDROCHLORIDE
     Indication: Cardiac operation
     Dosage: UNK
     Route: 065
     Dates: start: 20190311, end: 20200210
  13. VASTAREL [Concomitant]
     Active Substance: TRIMETAZIDINE DIHYDROCHLORIDE
     Indication: Cardiac failure
  14. NAPROSYN [Concomitant]
     Active Substance: NAPROXEN
     Indication: Bone pain
     Dosage: UNK
     Route: 065
     Dates: start: 20190801, end: 20200210
  15. DEMENT [Concomitant]
     Indication: Dementia
     Dosage: UNK
     Route: 065
     Dates: start: 2013
  16. IPRAVENT [Concomitant]
     Indication: Chronic obstructive pulmonary disease
     Dosage: UNK
     Route: 065
     Dates: start: 20190410

REACTIONS (2)
  - Immune-mediated hepatitis [Recovered/Resolved]
  - Immune-mediated hepatitis [Recovered/Resolved]

NARRATIVE: CASE EVENT DATE: 20191218
